FAERS Safety Report 6981124-1 (Version None)
Quarter: 2010Q3

REPORT INFORMATION
  Report Type: 
  Country: None (occurrence: None)
  Receive Date: 20100914
  Receipt Date: 20100819
  Transmission Date: 20110219
  Serious: No
  Sender: FDA-Public Use
  Company Number: US-PFIZER INC-2010105534

PATIENT
  Sex: Male
  Weight: 95.238 kg

DRUGS (3)
  1. ZYVOX [Suspect]
     Indication: STAPHYLOCOCCAL INFECTION
     Dosage: 600 MG, 2X/DAY
     Route: 048
     Dates: start: 20100804, end: 20100808
  2. LISINOPRIL [Concomitant]
     Indication: HYPERTENSION
     Dosage: UNK
  3. CELEBREX [Concomitant]
     Indication: ARTHRITIS
     Dosage: UNK

REACTIONS (8)
  - DIARRHOEA [None]
  - EYE IRRITATION [None]
  - FATIGUE [None]
  - GLOSSODYNIA [None]
  - HYPERHIDROSIS [None]
  - NAUSEA [None]
  - ORAL CANDIDIASIS [None]
  - PAIN OF SKIN [None]
